FAERS Safety Report 9162634 (Version 4)
Quarter: 2013Q1

REPORT INFORMATION
  Report Type: Report from Study
  Country: BE (occurrence: BE)
  Receive Date: 20130314
  Receipt Date: 20130329
  Transmission Date: 20140127
  Serious: Yes (Death, Hospitalization, Other)
  Sender: FDA-Public Use
  Company Number: BE-SANOFI-AVENTIS-2013SA013210

PATIENT
  Age: 78 Year
  Sex: Male

DRUGS (9)
  1. CABAZITAXEL [Suspect]
     Indication: PROSTATE CANCER METASTATIC
     Route: 042
     Dates: start: 20130201, end: 20130201
  2. PREDNISONE [Suspect]
     Indication: PROSTATE CANCER METASTATIC
     Route: 048
     Dates: start: 20130201, end: 20130210
  3. PREDNISONE [Concomitant]
     Indication: PROPHYLAXIS
     Route: 048
     Dates: start: 20110204
  4. CALCIUM CARBONATE [Concomitant]
     Indication: PROPHYLAXIS
     Route: 048
     Dates: start: 20120816
  5. SOTALOL [Concomitant]
     Indication: PROPHYLAXIS
     Route: 048
     Dates: start: 20100610
  6. SULFASALAZINE [Concomitant]
     Indication: PROPHYLAXIS
     Route: 048
     Dates: start: 20100715
  7. DENOSUMAB [Concomitant]
     Indication: PROPHYLAXIS
     Route: 058
     Dates: start: 20120718
  8. CALCIDOSE VITAMINE D [Concomitant]
     Indication: PROPHYLAXIS
     Route: 048
     Dates: start: 20120222
  9. ACENOCOUMAROL [Concomitant]
     Indication: PROPHYLAXIS
     Route: 048
     Dates: start: 20100610

REACTIONS (2)
  - Diverticular perforation [Fatal]
  - Febrile neutropenia [Recovered/Resolved]
